FAERS Safety Report 16188309 (Version 2)
Quarter: 2019Q2

REPORT INFORMATION
  Report Type: Report from Study
  Country: None (occurrence: CH)
  Receive Date: 20190412
  Receipt Date: 20190430
  Transmission Date: 20190711
  Serious: Yes (Hospitalization)
  Sender: FDA-Public Use
  Company Number: CH-ABBVIE-19S-151-2737159-00

PATIENT
  Sex: Male

DRUGS (11)
  1. CALCIMAGON D3 [Concomitant]
     Active Substance: CALCIUM\CHOLECALCIFEROL
     Indication: PRODUCT USED FOR UNKNOWN INDICATION
     Dosage: IN THE MORNING
  2. DUODOPA [Suspect]
     Active Substance: CARBIDOPA\LEVODOPA
     Dosage: MD  3 ML,  CRD 2.8 ML/H, CRN 1.7 ML/H, ED 0.5 ML?24 H THERAPY
     Route: 050
     Dates: start: 20180105, end: 20180910
  3. DUODOPA [Suspect]
     Active Substance: CARBIDOPA\LEVODOPA
     Dosage: MD  3.1 ML, CRD 3 ML/H, CRN 2 ML/H, ED 2 ML?24 H THERAPY
     Route: 050
     Dates: start: 20190405, end: 20190408
  4. REQUIP RET [Concomitant]
     Indication: PRODUCT USED FOR UNKNOWN INDICATION
     Dosage: IN THE MORNING
  5. DUODOPA [Suspect]
     Active Substance: CARBIDOPA\LEVODOPA
     Dosage: MD 3.1 ML, CRD 3 ML/H, CRN 2 ML/H, ED 2 ML?24 H THERAPY
     Route: 050
     Dates: start: 20190408, end: 20190411
  6. GUTRON [Concomitant]
     Active Substance: MIDODRINE
     Indication: PRODUCT USED FOR UNKNOWN INDICATION
     Dosage: MORNING, MIDDAY, EVENING
  7. DUODOPA [Suspect]
     Active Substance: CARBIDOPA\LEVODOPA
     Dosage: MD 3.1 ML, CRD 3.2 ML/H, CRN 2.5 ML/H, ED 2.2 ML, ED BLOCKING TIME: 1 H?24 H THERAPY
     Route: 050
     Dates: start: 20190411
  8. NOVALGIN (METAMIZOLE SODIUM) [Concomitant]
     Active Substance: METAMIZOLE SODIUM
     Indication: PRODUCT USED FOR UNKNOWN INDICATION
     Dosage: MORNING, MIDDAY, EVENING
  9. PREGABALIN. [Concomitant]
     Active Substance: PREGABALIN
     Indication: PRODUCT USED FOR UNKNOWN INDICATION
     Dosage: MORNING, EVENING
  10. DUODOPA [Suspect]
     Active Substance: CARBIDOPA\LEVODOPA
     Indication: PARKINSON^S DISEASE
     Route: 050
     Dates: start: 20171213, end: 20180105
  11. DUODOPA [Suspect]
     Active Substance: CARBIDOPA\LEVODOPA
     Dosage: MD 3.1 ML,  CRD 3 ML/H, CRN 2 ML/H, ED 2 ML?24 H THERAPY
     Route: 050
     Dates: start: 20180910, end: 20190405

REACTIONS (7)
  - Bursitis [Recovering/Resolving]
  - Dyskinesia [Not Recovered/Not Resolved]
  - Akinesia [Not Recovered/Not Resolved]
  - Off label use [Recovered/Resolved]
  - Fall [Not Recovered/Not Resolved]
  - On and off phenomenon [Not Recovered/Not Resolved]
  - Device dislocation [Recovered/Resolved]
